FAERS Safety Report 11652097 (Version 2)
Quarter: 2017Q1

REPORT INFORMATION
  Report Type: Spontaneous
  Country: US (occurrence: US)
  Receive Date: 20151022
  Receipt Date: 20170207
  Transmission Date: 20170428
  Serious: No
  Sender: FDA-Public Use
  Company Number: US-PFIZER INC-2015354192

PATIENT
  Age: 64 Year
  Sex: Female

DRUGS (7)
  1. DEMEROL [Suspect]
     Active Substance: MEPERIDINE HYDROCHLORIDE
     Dosage: UNK
  2. BETADINE [Suspect]
     Active Substance: POVIDONE-IODINE
     Dosage: UNK
  3. AZULFIDINE [Suspect]
     Active Substance: SULFASALAZINE
     Dosage: UNK
  4. NAPROSYN [Suspect]
     Active Substance: NAPROXEN
     Dosage: UNK
  5. UNISOM SLEEPTABS [Suspect]
     Active Substance: DOXYLAMINE SUCCINATE
     Dosage: UNK
  6. ERYTHROMYCIN. [Suspect]
     Active Substance: ERYTHROMYCIN
     Dosage: UNK
  7. METHOTREXATE SODIUM. [Suspect]
     Active Substance: METHOTREXATE SODIUM
     Dosage: UNK

REACTIONS (1)
  - Drug hypersensitivity [Unknown]
